FAERS Safety Report 14498361 (Version 1)
Quarter: 2018Q1

REPORT INFORMATION
  Report Type: Spontaneous
  Country: US (occurrence: US)
  Receive Date: 20180206
  Receipt Date: 20180206
  Transmission Date: 20180509
  Serious: Yes (Disabling)
  Sender: FDA-Public Use
  Company Number: None

PATIENT
  Age: 42 Month
  Sex: Female
  Weight: 67.5 kg

DRUGS (7)
  1. RISPERDAL [Suspect]
     Active Substance: RISPERIDONE
     Indication: PRODUCT USED FOR UNKNOWN INDICATION
  2. MULTI VITANMINE [Concomitant]
  3. BREAST IMPLANTS [Concomitant]
  4. VITAMIN E [Concomitant]
     Active Substance: .ALPHA.-TOCOPHEROL
  5. TOPAMAX [Concomitant]
     Active Substance: TOPIRAMATE
  6. BENITROPINE [Concomitant]
  7. VITAMIN B12 [Concomitant]
     Active Substance: CYANOCOBALAMIN

REACTIONS (6)
  - Tremor [None]
  - Eye disorder [None]
  - Alopecia [None]
  - Weight increased [None]
  - Migraine [None]
  - Rash [None]

NARRATIVE: CASE EVENT DATE: 20170101
